FAERS Safety Report 21196116 (Version 1)
Quarter: 2022Q3

REPORT INFORMATION
  Report Type: Spontaneous
  Country: CN (occurrence: CN)
  Receive Date: 20220810
  Receipt Date: 20220810
  Transmission Date: 20221027
  Serious: Yes (Other)
  Sender: FDA-Public Use
  Company Number: None

PATIENT
  Age: 52 Year
  Sex: Female
  Weight: 65 kg

DRUGS (4)
  1. CYCLOPHOSPHAMIDE [Suspect]
     Active Substance: CYCLOPHOSPHAMIDE
     Indication: Breast cancer female
     Dosage: 0.95 G, QD, D1, FIRST CYCLE
     Route: 041
     Dates: start: 20220415, end: 20220415
  2. CYCLOPHOSPHAMIDE [Suspect]
     Active Substance: CYCLOPHOSPHAMIDE
     Dosage: 0.95 G, QD, SECOND CYCLE.
     Route: 041
     Dates: start: 20220617, end: 20220617
  3. DOCETAXEL [Suspect]
     Active Substance: DOCETAXEL
     Indication: Breast cancer female
     Dosage: 125 MILLIGRAM, QD, D1, FIRST CHEMOTHERAPY
     Route: 041
     Dates: start: 20220415, end: 20220415
  4. DOCETAXEL [Suspect]
     Active Substance: DOCETAXEL
     Dosage: 125 MILLIGRAM, QD, SECOND CHEMOTHERAPY
     Route: 041
     Dates: start: 20220617, end: 20220617

REACTIONS (4)
  - Dysphagia [Unknown]
  - Feeding disorder [Unknown]
  - Nausea [Recovering/Resolving]
  - Vomiting [Recovering/Resolving]

NARRATIVE: CASE EVENT DATE: 20220617
